FAERS Safety Report 6531434-7 (Version None)
Quarter: 2010Q1

REPORT INFORMATION
  Report Type: 
  Country: None (occurrence: None)
  Receive Date: 20100108
  Receipt Date: 20091201
  Transmission Date: 20100710
  Serious: No
  Sender: FDA-Public Use
  Company Number: A0832497A

PATIENT
  Age: 41 Year
  Sex: Female

DRUGS (8)
  1. TYKERB [Suspect]
     Indication: BREAST CANCER
     Dosage: 5TAB PER DAY
     Route: 048
     Dates: start: 20091125
  2. XELODA [Concomitant]
  3. NORTRIPTYLINE [Concomitant]
  4. TUSSIONEX [Concomitant]
  5. LORAZEPAM [Concomitant]
  6. MAXALT [Concomitant]
     Indication: MIGRAINE
  7. MULTI-VITAMINS [Concomitant]
  8. VITAMIN D [Concomitant]

REACTIONS (1)
  - NAUSEA [None]
